FAERS Safety Report 26170387 (Version 1)
Quarter: 2025Q4

REPORT INFORMATION
  Report Type: Spontaneous
  Country: US (occurrence: US)
  Receive Date: 20251217
  Receipt Date: 20251217
  Transmission Date: 20260117
  Serious: No
  Sender: ARDELYX
  Company Number: US-ARDELYX-2025ARDX008797

PATIENT
  Age: 65 Year
  Sex: Male

DRUGS (21)
  1. XPHOZAH [Suspect]
     Active Substance: TENAPANOR HYDROCHLORIDE
     Indication: Hyperphosphataemia
     Dosage: 30 MG, BID
     Route: 048
  2. AMLODIPINE BESYLATE [Concomitant]
     Active Substance: AMLODIPINE BESYLATE
     Indication: Product used for unknown indication
     Dosage: 10 MG, QD (A.M)
     Route: 048
     Dates: start: 20240108
  3. ASPIRIN [Concomitant]
     Active Substance: ASPIRIN
     Indication: Product used for unknown indication
     Dosage: 81 MG, QD (A.M)
     Route: 048
     Dates: start: 20240108
  4. CALCITRIOL [Concomitant]
     Active Substance: CALCITRIOL
     Indication: Product used for unknown indication
     Dosage: 0.5 MCG, QD (TAKE 1 CAPSULE DAILY)
     Route: 048
     Dates: start: 20250605
  5. CALCIUM ACETATE [Concomitant]
     Active Substance: CALCIUM ACETATE
     Indication: Hyperphosphataemia
     Dosage: 667 MG (TOTAL DAILY DOSE: 2001 MG), TID (THREE TIMES DAILY WITH MEALS)
     Route: 048
     Dates: start: 20241223
  6. CARVEDILOL [Concomitant]
     Active Substance: CARVEDILOL
     Indication: Product used for unknown indication
     Dosage: 12.5 MG, BID
     Route: 048
     Dates: start: 20240108
  7. DOXAZOSIN MESYLATE [Concomitant]
     Active Substance: DOXAZOSIN MESYLATE
     Indication: Product used for unknown indication
     Dosage: 1 MG, QD (A.M)
     Route: 048
     Dates: start: 20240108
  8. ERGOCALCIFEROL [Concomitant]
     Active Substance: ERGOCALCIFEROL
     Indication: Product used for unknown indication
     Dosage: 50 MCG, QD (2000?3000 IU ON TUE, THU, SAT, SUN)
     Route: 048
     Dates: start: 20240108
  9. FAMOTIDINE [Concomitant]
     Active Substance: FAMOTIDINE
     Indication: Product used for unknown indication
     Dosage: 20 MG, QD (P.M)
     Route: 048
     Dates: start: 20240108
  10. LASIX [Concomitant]
     Active Substance: FUROSEMIDE
     Indication: Product used for unknown indication
     Dosage: 80 MG, QD
     Route: 048
     Dates: start: 20240124
  11. OMEGA-3 ACIDS [Concomitant]
     Active Substance: OMEGA-3 FATTY ACIDS
     Indication: Product used for unknown indication
     Dosage: 1000 MG, QD (A.M)
     Route: 048
     Dates: start: 20240108
  12. PLAVIX [Concomitant]
     Active Substance: CLOPIDOGREL BISULFATE
     Indication: Product used for unknown indication
     Dosage: 75 MG, QD (A.M)
     Route: 048
     Dates: start: 20240108
  13. SEVELAMER CARBONATE [Concomitant]
     Active Substance: SEVELAMER CARBONATE
     Indication: Product used for unknown indication
     Dosage: 800 MG, TID
     Route: 048
     Dates: start: 20250303
  14. SODIUM BICARBONATE [Concomitant]
     Active Substance: SODIUM BICARBONATE
     Indication: Product used for unknown indication
     Dosage: 650 MG, QD
     Route: 048
     Dates: start: 20250606
  15. TRESIBA [Concomitant]
     Active Substance: INSULIN DEGLUDEC
     Indication: Product used for unknown indication
     Dosage: 6 UNITS
     Route: 058
     Dates: start: 20240731
  16. HYDROCHLOROTHIAZIDE\VALSARTAN [Concomitant]
     Active Substance: HYDROCHLOROTHIAZIDE\VALSARTAN
     Indication: Product used for unknown indication
     Dosage: 160-12.5 MG (A.M)
     Route: 048
     Dates: start: 20240108
  17. ZETIA [Concomitant]
     Active Substance: EZETIMIBE
     Indication: Product used for unknown indication
     Dosage: 10 MG, QD (A.M)
     Route: 048
     Dates: start: 20240108
  18. CLARITIN [Concomitant]
     Active Substance: LORATADINE
     Indication: Product used for unknown indication
     Dosage: 10 MG (AS NEEDED (P.M.)
     Route: 048
     Dates: start: 20240108
  19. VITAMIN C [Concomitant]
     Active Substance: ASCORBIC ACID
     Indication: Product used for unknown indication
     Dosage: AS NEEDED (500?1000 MG PRN)
     Route: 048
     Dates: start: 20240108
  20. MIRCERA [Concomitant]
     Active Substance: METHOXY POLYETHYLENE GLYCOL-EPOETIN BETA
     Indication: Product used for unknown indication
     Dosage: 175 MCG EVERY 3 TO 4 WEEKS
     Route: 058
     Dates: start: 20251022
  21. VENOFER [Concomitant]
     Active Substance: IRON SUCROSE
     Indication: Product used for unknown indication
     Dosage: 100 MG, MONTHLY
     Route: 042
     Dates: start: 20240503

REACTIONS (1)
  - Diarrhoea [Unknown]

NARRATIVE: CASE EVENT DATE: 20251101
